FAERS Safety Report 7822877-X (Version None)
Quarter: 2011Q4

REPORT INFORMATION
  Report Type: 
  Country: None (occurrence: None)
  Receive Date: 20111018
  Receipt Date: 20110202
  Transmission Date: 20120403
  Serious: No
  Sender: FDA-Public Use
  Company Number: US-ASTRAZENECA-2010SE42026

PATIENT
  Sex: Female

DRUGS (2)
  1. SYMBICORT [Suspect]
     Indication: DYSPNOEA
     Dosage: 320 MCG TWO TIMES A DAY
     Route: 055
     Dates: start: 20100901
  2. ALBUTEROL [Concomitant]

REACTIONS (2)
  - MALAISE [None]
  - DRUG DOSE OMISSION [None]
